FAERS Safety Report 6033143-X (Version None)
Quarter: 2008Q4

REPORT INFORMATION
  Report Type: 
  Country: None (occurrence: None)
  Receive Date: 20081224
  Receipt Date: 20081105
  Transmission Date: 20090506
  Serious: No
  Sender: FDA-Public Use
  Company Number: 2008PV037046

PATIENT
  Age: 51 Year
  Sex: Male
  Weight: 158.759 kg

DRUGS (8)
  1. SYMLIN [Suspect]
     Indication: TYPE 2 DIABETES MELLITUS
     Dosage: 120 MCG;UNK;SC
     Route: 058
     Dates: start: 20081104
  2. SYMLIN [Suspect]
     Indication: TYPE 2 DIABETES MELLITUS
     Dosage: 60 MCG;SC
     Route: 058
     Dates: start: 20081001, end: 20081101
  3. NOVOLOG [Concomitant]
  4. LEVEMIR [Concomitant]
  5. METFORMIN [Concomitant]
  6. TEKTURNA [Concomitant]
  7. LASIX [Concomitant]
  8. CHOLESTEROL PILLS [Concomitant]

REACTIONS (2)
  - HYPOAESTHESIA ORAL [None]
  - OEDEMA MOUTH [None]
